FAERS Safety Report 7520520-0 (Version None)
Quarter: 2011Q2

REPORT INFORMATION
  Report Type: 
  Country: None (occurrence: None)
  Receive Date: 20110602
  Receipt Date: 20110518
  Transmission Date: 20111010
  Serious: Yes (Other)
  Sender: FDA-Public Use
  Company Number: CA-ELI_LILLY_AND_COMPANY-CA201105005200

PATIENT
  Sex: Male

DRUGS (7)
  1. EFFEXOR [Concomitant]
  2. ASPIRIN [Concomitant]
  3. ZYPREXA [Suspect]
     Indication: PARANOIA
     Dosage: 7.5 MG, EACH EVENING
  4. LORAZEPAM [Concomitant]
  5. ZYPREXA [Suspect]
     Dosage: 5 MG, EACH EVENING
  6. ZYPREXA [Suspect]
     Dosage: 2.5 MG, UNKNOWN
  7. ZYPREXA [Suspect]
     Dosage: 3.75 DF, EACH EVENING

REACTIONS (15)
  - BUNDLE BRANCH BLOCK RIGHT [None]
  - ARTERIAL RUPTURE [None]
  - SUPRAVENTRICULAR EXTRASYSTOLES [None]
  - HYPERLIPIDAEMIA [None]
  - RENAL FAILURE [None]
  - HAEMANGIOMA [None]
  - CYANOSIS [None]
  - HYPERTENSION [None]
  - HAEMORRHAGIC CYST [None]
  - ARTERIOSCLEROSIS [None]
  - RENAL CYST [None]
  - ATRIAL FIBRILLATION [None]
  - RENAL ARTERY STENOSIS [None]
  - CENTRAL OBESITY [None]
  - INSULIN-REQUIRING TYPE 2 DIABETES MELLITUS [None]
